FAERS Safety Report 5471874-0 (Version None)
Quarter: 2007Q3

REPORT INFORMATION
  Report Type: 
  Country: None (occurrence: None)
  Receive Date: 20070928
  Receipt Date: 20070716
  Transmission Date: 20080115
  Serious: No
  Sender: FDA-Public Use
  Company Number: US-BRISTOL-MYERS SQUIBB COMPANY-13848288

PATIENT
  Age: 62 Year
  Sex: Female

DRUGS (9)
  1. DEFINITY [Suspect]
     Route: 042
  2. PLAVIX [Concomitant]
  3. SPIRONOLACTONE [Concomitant]
  4. LIPITOR [Concomitant]
  5. TOPROL-XL [Concomitant]
  6. ALTACE [Concomitant]
  7. ASPIRIN [Concomitant]
  8. FOLIC ACID [Concomitant]
  9. FISH OIL [Concomitant]

REACTIONS (1)
  - BACK PAIN [None]
